FAERS Safety Report 6713550-X (Version None)
Quarter: 2010Q2

REPORT INFORMATION
  Report Type: 
  Country: None (occurrence: None)
  Receive Date: 20100503
  Receipt Date: 20100416
  Transmission Date: 20101027
  Serious: Yes (Other)
  Sender: FDA-Public Use
  Company Number: 20100173

PATIENT
  Sex: Female

DRUGS (2)
  1. VENOFER [Suspect]
     Indication: ANAEMIA
     Dosage: 100 MG IN 250 NORMAL
     Dates: start: 20100407, end: 20100407
  2. UNSPECIFIED [Concomitant]

REACTIONS (4)
  - INFUSION SITE DISCOLOURATION [None]
  - INFUSION SITE EXTRAVASATION [None]
  - INFUSION SITE IRRITATION [None]
  - INFUSION SITE SWELLING [None]
